FAERS Safety Report 23880342 (Version 1)
Quarter: 2024Q2

REPORT INFORMATION
  Report Type: Spontaneous
  Country: US (occurrence: None)
  Receive Date: 20240521
  Receipt Date: 20240521
  Transmission Date: 20240715
  Serious: No
  Sender: FDA-Public Use
  Company Number: None

PATIENT
  Age: 29 Year
  Sex: Female
  Weight: 68.4 kg

DRUGS (10)
  1. NEUTROGENA ULTRA SHEER BODY MIST SUNSCREEN BROAD SPECTRUM SPF 30 (AVO\ [Suspect]
     Active Substance: AVOBENZONE\HOMOSALATE\OCTISALATE\OCTOCRYLENE
     Indication: Prophylaxis against solar radiation
     Dosage: OTHER QUANTITY : 5 OUNCE(S);?FREQUENCY : AS NEEDED;?
     Route: 061
  2. BUPROPION [Concomitant]
     Active Substance: BUPROPION
  3. MONTELUKAST [Concomitant]
     Active Substance: MONTELUKAST SODIUM
  4. BUSPIRONE [Concomitant]
     Active Substance: BUSPIRONE HYDROCHLORIDE
  5. HYDROXYZINE PAMOATE [Concomitant]
     Active Substance: HYDROXYZINE PAMOATE
  6. TRIAMCINOLONE [Concomitant]
     Active Substance: TRIAMCINOLONE
  7. Loestrin Lo [Concomitant]
  8. VITAMINS [Concomitant]
     Active Substance: VITAMINS
  9. FAMOTIDINE [Concomitant]
     Active Substance: FAMOTIDINE
  10. CETIRIZINE [Concomitant]
     Active Substance: CETIRIZINE HYDROCHLORIDE

REACTIONS (2)
  - Rash [None]
  - Rash [None]

NARRATIVE: CASE EVENT DATE: 20240514
